FAERS Safety Report 9058012 (Version 1)
Quarter: 2013Q1

REPORT INFORMATION
  Report Type: Spontaneous
  Country: NL (occurrence: NL)
  Receive Date: 20130211
  Receipt Date: 20130211
  Transmission Date: 20140127
  Serious: Yes (Other)
  Sender: FDA-Public Use
  Company Number: NL-BIOGENIDEC-2012BI042015

PATIENT
  Age: 31 Year
  Sex: Female

DRUGS (5)
  1. AVONEX [Suspect]
     Indication: PRODUCT USED FOR UNKNOWN INDICATION
     Route: 030
     Dates: start: 20100203
  2. 4-AMINOPYRIDINE [Concomitant]
  3. TILDIEM [Concomitant]
  4. BETASERC [Concomitant]
  5. LIVOCAB [Concomitant]

REACTIONS (7)
  - Epilepsy [Unknown]
  - Presyncope [Unknown]
  - Central nervous system lesion [Unknown]
  - Syncope [Unknown]
  - General symptom [Unknown]
  - Chills [Unknown]
  - Paraesthesia [Unknown]
